FAERS Safety Report 5918794-2 (Version None)
Quarter: 2008Q4

REPORT INFORMATION
  Report Type: 
  Country: None (occurrence: None)
  Receive Date: 20081010
  Receipt Date: 20080929
  Transmission Date: 20090506
  Serious: Yes (Other)
  Sender: FDA-Public Use
  Company Number: 1000000966

PATIENT
  Age: 43 Year
  Sex: Female
  Weight: 102 kg

DRUGS (3)
  1. ESCITALOPRAM [Suspect]
     Indication: DEPRESSION
     Dosage: 20 MG (20 MG, 1 IN 1 D), ORAL
     Route: 048
     Dates: start: 20071117
  2. CHAMPIX (TABLETS) [Suspect]
     Indication: SMOKING CESSATION THERAPY
     Dosage: 2 DOSAGE FORMS (1 DOSAGE FROMS, 2 IN 1 D), ORAL
     Route: 048
     Dates: start: 20080430, end: 20080803
  3. CHAMPIX (TABLETS) [Suspect]
     Indication: SMOKING CESSATION THERAPY
     Dosage: 1 DOSAGE FORMS (1 DOSAGE FORMS, 1 IN 1 D), ORAL
     Route: 048
     Dates: start: 20080101

REACTIONS (2)
  - DEPRESSION [None]
  - INHIBITORY DRUG INTERACTION [None]
